FAERS Safety Report 7435564-7 (Version None)
Quarter: 2011Q2

REPORT INFORMATION
  Report Type: 
  Country: None (occurrence: None)
  Receive Date: 20110425
  Receipt Date: 20110420
  Transmission Date: 20111010
  Serious: No
  Sender: FDA-Public Use
  Company Number: US-PFIZER INC-2011086488

PATIENT
  Sex: Female

DRUGS (3)
  1. LOSARTAN POTASSIUM [Suspect]
     Dosage: UNK
  2. VERAPAMIL HCL [Suspect]
     Dosage: UNK
  3. VALTURNA [Concomitant]
     Indication: HYPERTENSION

REACTIONS (3)
  - OEDEMA PERIPHERAL [None]
  - SKIN ULCER [None]
  - EFFUSION [None]
